FAERS Safety Report 8469950-3 (Version None)
Quarter: 2012Q2

REPORT INFORMATION
  Report Type: 
  Country: None (occurrence: None)
  Receive Date: 20120627
  Receipt Date: 20120619
  Transmission Date: 20120825
  Serious: No
  Sender: FDA-Public Use
  Company Number: US-BIOGENIDEC-2010BI035789

PATIENT
  Age: 32 Year
  Sex: Male

DRUGS (3)
  1. AVONEX [Concomitant]
     Indication: MULTIPLE SCLEROSIS
     Route: 030
     Dates: start: 20001104
  2. AVONEX [Concomitant]
     Route: 030
  3. TYSABRI [Suspect]
     Indication: MULTIPLE SCLEROSIS
     Route: 042
     Dates: start: 20090406

REACTIONS (6)
  - MEMORY IMPAIRMENT [None]
  - HEADACHE [None]
  - ASTHENIA [None]
  - FATIGUE [None]
  - DYSPNOEA [None]
  - BALANCE DISORDER [None]
